FAERS Safety Report 22623909 (Version 1)
Quarter: 2023Q2

REPORT INFORMATION
  Report Type: Spontaneous
  Country: US (occurrence: US)
  Receive Date: 20230621
  Receipt Date: 20230621
  Transmission Date: 20230722
  Serious: No
  Sender: FDA-Public Use
  Company Number: US-PROVENTION BIO, INC.-US-PRAG-23-00032

PATIENT
  Age: 39 Year
  Sex: Female

DRUGS (5)
  1. TZIELD [Suspect]
     Active Substance: TEPLIZUMAB-MZWV
     Indication: Diabetes prophylaxis
     Dosage: 103.35 MICROGRAM, SINGLE
     Route: 042
     Dates: start: 20230505, end: 20230505
  2. TZIELD [Suspect]
     Active Substance: TEPLIZUMAB-MZWV
     Dosage: 198.75 MICROGRAM, SINGLE
     Route: 042
     Dates: start: 20230506, end: 20230506
  3. TZIELD [Suspect]
     Active Substance: TEPLIZUMAB-MZWV
     Dosage: 397.5 MICROGRAM, SINGLE
     Route: 042
     Dates: start: 20230507, end: 20230507
  4. TZIELD [Suspect]
     Active Substance: TEPLIZUMAB-MZWV
     Dosage: 795 MICROGRAM, SINGLE
     Route: 042
     Dates: start: 20230508, end: 20230508
  5. TZIELD [Suspect]
     Active Substance: TEPLIZUMAB-MZWV
     Dosage: 1637.7 MICROGRAM, SINGLE
     Route: 042
     Dates: start: 20230509, end: 20230518

REACTIONS (12)
  - Restlessness [Recovering/Resolving]
  - Abdominal discomfort [Recovering/Resolving]
  - Back pain [Recovering/Resolving]
  - Pain [Recovering/Resolving]
  - Fatigue [Unknown]
  - Pruritus [Unknown]
  - Body temperature increased [Recovering/Resolving]
  - Headache [Recovering/Resolving]
  - Nausea [Recovering/Resolving]
  - Full blood count abnormal [Unknown]
  - Lymphocyte count decreased [Unknown]
  - Rash erythematous [Unknown]

NARRATIVE: CASE EVENT DATE: 20230507
